FAERS Safety Report 4311513-5 (Version None)
Quarter: 2004Q1

REPORT INFORMATION
  Report Type: 
  Country: None (occurrence: None)
  Receive Date: 20040302
  Receipt Date: 20040112
  Transmission Date: 20041129
  Serious: No
  Sender: FDA-Public Use
  Company Number: 200324728BWH

PATIENT
  Age: 51 Year
  Sex: Male

DRUGS (8)
  1. LEVITRA [Suspect]
     Indication: ERECTILE DYSFUNCTION
     Dosage: 10 MG, PRN, ORAL; 20 MG, PRN, ORAL
     Route: 048
     Dates: start: 20030924
  2. LEVITRA [Suspect]
     Indication: ERECTILE DYSFUNCTION
     Dosage: 10 MG, PRN, ORAL; 20 MG, PRN, ORAL
     Route: 048
     Dates: start: 20030927
  3. ZOCOR [Concomitant]
  4. TOPROL-XL [Concomitant]
  5. CAPTOPRIL [Concomitant]
  6. NORVASC (NOS) [Concomitant]
  7. ASPIRIN [Concomitant]
  8. FOLIC ACID [Concomitant]

REACTIONS (2)
  - ERECTILE DYSFUNCTION [None]
  - NASAL CONGESTION [None]
